FAERS Safety Report 25596176 (Version 3)
Quarter: 2025Q4

REPORT INFORMATION
  Report Type: Spontaneous
  Country: US (occurrence: US)
  Receive Date: 20250723
  Receipt Date: 20251015
  Transmission Date: 20260117
  Serious: No
  Sender: SANOFI AVENTIS
  Company Number: US-SA-2025SA210815

PATIENT
  Age: 73 Year
  Sex: Female

DRUGS (3)
  1. DUPIXENT [Suspect]
     Active Substance: DUPILUMAB
     Indication: Dermatitis atopic
     Dosage: 300 MG, QOW
     Route: 058
     Dates: start: 202507
  2. LENALIDOMIDE [Concomitant]
     Active Substance: LENALIDOMIDE
  3. DICLOFENAC SODIUM [Concomitant]
     Active Substance: DICLOFENAC SODIUM
     Dosage: 75 MG TABLETS

REACTIONS (5)
  - Pain in extremity [Unknown]
  - Skin fissures [Unknown]
  - Erythema [Unknown]
  - Skin exfoliation [Unknown]
  - Injury [Unknown]

NARRATIVE: CASE EVENT DATE: 20250101
